APPROVED DRUG PRODUCT: KEPPRA
Active Ingredient: LEVETIRACETAM
Strength: 500MG/5ML (100MG/ML)
Dosage Form/Route: INJECTABLE;INTRAVENOUS
Application: N021872 | Product #001 | TE Code: AP
Applicant: UCB INC
Approved: Jul 31, 2006 | RLD: Yes | RS: Yes | Type: RX